FAERS Safety Report 8112954-0 (Version None)
Quarter: 2012Q1

REPORT INFORMATION
  Report Type: 
  Country: None (occurrence: None)
  Receive Date: 20120203
  Receipt Date: 20120126
  Transmission Date: 20120608
  Serious: Yes (Hospitalization)
  Sender: FDA-Public Use
  Company Number: US-MERCK-1201USA03537

PATIENT
  Age: 54 Year
  Sex: Female
  Weight: 91 kg

DRUGS (4)
  1. SYNTHROID [Concomitant]
     Route: 065
  2. CARDIZEM CD [Suspect]
     Indication: HYPERTENSION
     Route: 065
  3. REBIF [Suspect]
     Indication: MULTIPLE SCLEROSIS
     Route: 058
     Dates: start: 20020717
  4. PRINIVIL [Suspect]
     Indication: HYPERTENSION
     Route: 048

REACTIONS (7)
  - BLOOD PRESSURE DECREASED [None]
  - VISUAL IMPAIRMENT [None]
  - ASTHENIA [None]
  - INJECTION SITE CELLULITIS [None]
  - LOSS OF CONSCIOUSNESS [None]
  - FALL [None]
  - VOMITING [None]
